FAERS Safety Report 5920280-0 (Version None)
Quarter: 2008Q4

REPORT INFORMATION
  Report Type: 
  Country: None (occurrence: None)
  Receive Date: 20081016
  Receipt Date: 20081006
  Transmission Date: 20090506
  Serious: Yes (Other)
  Sender: FDA-Public Use
  Company Number: US-WYE-H06276408

PATIENT
  Sex: Male
  Weight: 81 kg

DRUGS (2)
  1. TORISEL [Suspect]
     Indication: RENAL CANCER METASTATIC
     Dosage: 25MG AT UNKNOWN FREQUENCY
     Route: 042
     Dates: start: 20080101
  2. BLOOD AND RELATED PRODUCTS [Concomitant]
     Dosage: UNKNOWN DOSE

REACTIONS (5)
  - BACK PAIN [None]
  - BLOOD PRESSURE INCREASED [None]
  - CHEST PAIN [None]
  - RESTLESSNESS [None]
  - SINUS TACHYCARDIA [None]
